FAERS Safety Report 6293681-1 (Version None)
Quarter: 2009Q3

REPORT INFORMATION
  Report Type: 
  Country: None (occurrence: None)
  Receive Date: 20090803
  Receipt Date: 20090721
  Transmission Date: 20100115
  Serious: Yes (Death, Hospitalization, Other)
  Sender: FDA-Public Use
  Company Number: US-TYCO HEALTHCARE/MALLINCKRODT-T200900977

PATIENT
  Sex: Male

DRUGS (15)
  1. OPTIMARK [Suspect]
     Indication: NUCLEAR MAGNETIC RESONANCE IMAGING ABDOMINAL
     Dosage: 15 ML, SINGLE
     Dates: start: 20050901, end: 20050901
  2. OPTIMARK [Suspect]
     Dosage: 30 ML, SINGLE
     Dates: start: 20060323, end: 20060323
  3. MAGNEVIST [Suspect]
     Indication: NUCLEAR MAGNETIC RESONANCE IMAGING
     Dosage: 20 ML, SINGLE
     Dates: start: 19990818, end: 19990818
  4. MAGNEVIST [Suspect]
     Indication: NUCLEAR MAGNETIC RESONANCE IMAGING BRAIN
     Dosage: UNK
     Dates: start: 20051206, end: 20051206
  5. MAGNEVIST [Suspect]
     Dosage: UNK
     Dates: start: 20060516, end: 20060516
  6. LOTUS INSULIN [Concomitant]
     Indication: DIABETES MELLITUS
     Dosage: 5 UNITS, BID
  7. PHOSLO [Concomitant]
     Indication: RENAL FAILURE CHRONIC
     Dosage: 2 GMS WITH MEALS
  8. REGLAN [Concomitant]
     Indication: GASTROOESOPHAGEAL REFLUX DISEASE
     Dosage: 5 MG BEFORE MEALS
  9. COUMADIN [Concomitant]
     Indication: ANTICOAGULANT THERAPY
     Dosage: 2.5 MG DAILY
  10. LEVOTHYROXINE SODIUM [Concomitant]
     Indication: HYPOTHYROIDISM
     Dosage: 112 UG, QD
  11. LOTREL [Concomitant]
     Indication: HYPERTENSION
     Dosage: 2.5/10 MG DAILY
  12. PAREGORIC [Concomitant]
     Indication: DIARRHOEA
     Dosage: 5 ML, EVERY 6 HRS
  13. ACIPHEX [Concomitant]
     Indication: GASTROOESOPHAGEAL REFLUX DISEASE
     Dosage: 20 MG, BEFORE BKFST AND SUPPER
  14. HUMALOG [Concomitant]
     Indication: DIABETES MELLITUS
     Dosage: 5 UNITS, WITH MEALS
  15. DIGOXIN [Concomitant]
     Indication: CARDIAC DISORDER
     Dosage: 0.125 MG, Q M/W/F AFTER DIALYSIS

REACTIONS (9)
  - ABDOMINAL PAIN UPPER [None]
  - HYPERPARATHYROIDISM SECONDARY [None]
  - HYPOGLYCAEMIA [None]
  - IMPAIRED GASTRIC EMPTYING [None]
  - NECROSIS [None]
  - NEPHROGENIC SYSTEMIC FIBROSIS [None]
  - OFF LABEL USE [None]
  - RESPIRATORY ARREST [None]
  - VENOUS STENOSIS [None]
